FAERS Safety Report 9689412 (Version 1)
Quarter: 2013Q4

REPORT INFORMATION
  Report Type: Spontaneous
  Country: JP (occurrence: JP)
  Receive Date: 20131114
  Receipt Date: 20131114
  Transmission Date: 20140711
  Serious: Yes (Life-Threatening, Hospitalization)
  Sender: FDA-Public Use
  Company Number: PHHY2013JP128867

PATIENT
  Age: 27 Year
  Sex: Female
  Weight: 68.8 kg

DRUGS (5)
  1. THIAMAZOLE [Suspect]
     Indication: BASEDOW^S DISEASE
  2. SODIUM VALPROATE [Concomitant]
     Indication: SCHIZOPHRENIA
     Dosage: 400 MG PER DAY
  3. RISPERIDONE [Concomitant]
     Indication: SCHIZOPHRENIA
     Dosage: 2 MG PER DAY
  4. LORAZEPAM [Concomitant]
     Indication: SCHIZOPHRENIA
     Dosage: 1 MG PER DAY
  5. ESTAZOLAM [Concomitant]
     Indication: SCHIZOPHRENIA
     Dosage: 2 MG PER DAY

REACTIONS (24)
  - Pneumococcal sepsis [Recovering/Resolving]
  - Staphylococcal infection [Unknown]
  - Oropharyngeal pain [Recovering/Resolving]
  - Malaise [Recovering/Resolving]
  - Blood lactate dehydrogenase increased [Recovering/Resolving]
  - C-reactive protein increased [Recovering/Resolving]
  - Body temperature increased [Recovering/Resolving]
  - Sinus tachycardia [Recovering/Resolving]
  - Upper airway obstruction [Recovering/Resolving]
  - Dyspnoea [Recovering/Resolving]
  - Dysphagia [Recovering/Resolving]
  - Dysphonia [Recovering/Resolving]
  - Lymphadenopathy [Recovering/Resolving]
  - Tonsillar disorder [Recovering/Resolving]
  - Stridor [Recovering/Resolving]
  - Oedema mucosal [Recovering/Resolving]
  - Streptococcus test positive [Recovering/Resolving]
  - Bacterial infection [Recovering/Resolving]
  - Drooling [Recovering/Resolving]
  - White blood cell count decreased [Recovering/Resolving]
  - Salivary hypersecretion [Recovering/Resolving]
  - Proteinuria [Recovering/Resolving]
  - Agranulocytosis [Recovering/Resolving]
  - Arthralgia [Recovering/Resolving]
